FAERS Safety Report 13626455 (Version 1)
Quarter: 2017Q2

REPORT INFORMATION
  Report Type: Spontaneous
  Country: US (occurrence: US)
  Receive Date: 20170531
  Receipt Date: 20170531
  Transmission Date: 20170830
  Serious: Yes (Hospitalization)
  Sender: FDA-Public Use
  Company Number: US-ASTELLAS-1379549

PATIENT
  Sex: Female

DRUGS (8)
  1. TARCEVA [Suspect]
     Active Substance: ERLOTINIB HYDROCHLORIDE
     Indication: LUNG NEOPLASM MALIGNANT
     Dosage: DAILY
     Route: 048
     Dates: start: 20130723
  2. OXYCODONE HYDROCHLORIDE. [Concomitant]
     Active Substance: OXYCODONE HYDROCHLORIDE
  3. ARIXTRA [Concomitant]
     Active Substance: FONDAPARINUX SODIUM
  4. EMLA [Concomitant]
     Active Substance: LIDOCAINE\PRILOCAINE
  5. TUMS [Concomitant]
     Active Substance: CALCIUM CARBONATE
  6. LORAZEPAM. [Concomitant]
     Active Substance: LORAZEPAM
  7. PROCHLORPERAZINE MALEATE. [Concomitant]
     Active Substance: PROCHLORPERAZINE MALEATE
  8. CLARITIN [Concomitant]
     Active Substance: LORATADINE

REACTIONS (1)
  - Pneumonia [Recovered/Resolved]
